FAERS Safety Report 8503258-2 (Version None)
Quarter: 2012Q3

REPORT INFORMATION
  Report Type: 
  Country: None (occurrence: None)
  Receive Date: 20120711
  Receipt Date: 20120705
  Transmission Date: 20120928
  Serious: Yes (Other)
  Sender: FDA-Public Use
  Company Number: US-PFIZER INC-2012162402

PATIENT
  Sex: Male
  Weight: 104 kg

DRUGS (7)
  1. GLUCOPHAGE [Concomitant]
     Indication: DIABETES MELLITUS
     Dosage: 1700 MG, DAILY
     Route: 048
  2. LIPOFENE [Concomitant]
     Indication: BLOOD CHOLESTEROL ABNORMAL
     Dosage: 150 MG, DAILY
  3. PREDNISOLONE [Concomitant]
     Dosage: UNK
  4. LYRICA [Suspect]
     Indication: BACK PAIN
     Dosage: 75 MG, 3X/DAY
     Route: 048
     Dates: start: 20110101, end: 20120612
  5. GLIMEPIRIDE [Concomitant]
     Dosage: UNK
  6. XANAX [Concomitant]
     Indication: GENERALISED ANXIETY DISORDER
     Dosage: UNK
  7. PRAVASTATIN [Concomitant]
     Indication: BLOOD CHOLESTEROL ABNORMAL
     Dosage: 40 MG, DAILY
     Route: 048

REACTIONS (3)
  - DEPRESSED MOOD [None]
  - PAIN [None]
  - SOMNOLENCE [None]
